FAERS Safety Report 9409349 (Version 4)
Quarter: 2013Q4

REPORT INFORMATION
  Report Type: Spontaneous
  Country: US (occurrence: US)
  Receive Date: 20130423
  Receipt Date: 20131004
  Transmission Date: 20140711
  Serious: Yes (Other)
  Sender: FDA-Public Use
  Company Number: ACO_32554_2012

PATIENT
  Age: 60 Year
  Sex: Female
  Weight: 59 kg

DRUGS (9)
  1. AMPYRA [Suspect]
     Indication: GAIT DISTURBANCE
     Route: 048
     Dates: start: 2010
  2. DITROPAN XL (OXYBUTYNIN HYDROCHLORIDE) [Concomitant]
  3. RECLAST (ZOLEDRONIC ACID) [Concomitant]
  4. ESTRIOL (ESTRIOL) [Concomitant]
  5. BACLOFEN (BACLOFEN) [Concomitant]
  6. PROVIGIL (MODAFINIL) [Concomitant]
  7. LEXAPRO (ESCITALOPRAM OXALATE) [Concomitant]
  8. MULTIVITAMIN (VITAMINS NOS) [Concomitant]
  9. CALCIUM VITAMIN D (CALCIUM, COLECALCIFEROL) [Concomitant]

REACTIONS (4)
  - Bladder irritation [None]
  - Escherichia urinary tract infection [None]
  - Urinary tract infection [None]
  - Urinary incontinence [None]
